FAERS Safety Report 18693455 (Version 2)
Quarter: 2021Q1

REPORT INFORMATION
  Report Type: Spontaneous
  Country: ES (occurrence: ES)
  Receive Date: 20210104
  Receipt Date: 20210107
  Transmission Date: 20210419
  Serious: Yes (Hospitalization, Other)
  Sender: FDA-Public Use
  Company Number: ES-AUROBINDO-AUR-APL-2020-064407

PATIENT
  Age: 56 Year
  Sex: Male

DRUGS (10)
  1. MICAFUNGIN. [Concomitant]
     Active Substance: MICAFUNGIN SODIUM
     Indication: BRONCHOPULMONARY ASPERGILLOSIS
     Dosage: 350 MILLIGRAM, 0.5 WEEK, INTERMITTENT THERAPY
     Route: 042
  2. VORICONAZOLE. [Suspect]
     Active Substance: VORICONAZOLE
     Indication: IMMUNOSUPPRESSION
     Dosage: 400 MILLIGRAM, TWO TIMES A DAY
     Route: 042
  3. VORICONAZOLE. [Suspect]
     Active Substance: VORICONAZOLE
     Dosage: 300 MILLIGRAM, TWO TIMES A DAY
     Route: 048
  4. BASILIXIMAB [Suspect]
     Active Substance: BASILIXIMAB
     Indication: IMMUNOSUPPRESSANT DRUG THERAPY
     Dosage: UNK
     Route: 065
  5. PREDNISONE. [Suspect]
     Active Substance: PREDNISONE
     Indication: IMMUNOSUPPRESSANT DRUG THERAPY
     Dosage: 5 MILLIGRAM, ONCE A DAY
     Route: 065
  6. TACROLIMUS. [Suspect]
     Active Substance: TACROLIMUS
     Indication: IMMUNOSUPPRESSANT DRUG THERAPY
     Dosage: TROUGH TARGET 6 NG/ML
     Route: 065
  7. FLUCYTOSINE. [Suspect]
     Active Substance: FLUCYTOSINE
     Indication: ANTIFUNGAL TREATMENT
     Dosage: 3 GRAM, 3 TIMES A DAY
     Route: 065
  8. MYCOPHENOLATE [Suspect]
     Active Substance: MYCOPHENOLIC ACID
     Indication: IMMUNOSUPPRESSANT DRUG THERAPY
     Dosage: 500 MILLIGRAM, 0.5 DAY
     Route: 065
  9. POSACONAZOLE [Suspect]
     Active Substance: POSACONAZOLE
     Indication: BRONCHOPULMONARY ASPERGILLOSIS
     Dosage: 300 MILLIGRAM, ONCE A DAY
     Route: 048
  10. AMPHOTERICINE B [Suspect]
     Active Substance: AMPHOTERICIN B
     Indication: ANTIFUNGAL TREATMENT
     Dosage: 8 MILLIGRAM/KILOGRAM, ONCE A DAY
     Route: 065

REACTIONS (10)
  - Abdominal pain [Unknown]
  - Neutropenia [Recovered/Resolved]
  - Toxicity to various agents [Unknown]
  - Cerebral ventricle collapse [Recovered/Resolved]
  - Drug ineffective [Unknown]
  - Bronchopulmonary aspergillosis [Recovered/Resolved]
  - Drug resistance [Unknown]
  - Cytomegalovirus enterocolitis [Recovered/Resolved]
  - Cerebral aspergillosis [Recovered/Resolved]
  - Disease progression [Unknown]
